FAERS Safety Report 8826872 (Version 3)
Quarter: 2013Q1

REPORT INFORMATION
  Report Type: Spontaneous
  Country: US (occurrence: US)
  Receive Date: 20121008
  Receipt Date: 20130115
  Transmission Date: 20140127
  Serious: Yes (Other)
  Sender: FDA-Public Use
  Company Number: US-AMGEN-USASP2012062777

PATIENT
  Age: 34 Year
  Sex: Female

DRUGS (2)
  1. ENBREL [Suspect]
     Indication: PSORIATIC ARTHROPATHY
     Dosage: 50 MG, QWK
     Dates: start: 20000717, end: 20121209
  2. HUMIRA [Concomitant]
     Dosage: UNK

REACTIONS (9)
  - Asthma [Not Recovered/Not Resolved]
  - Dyspnoea [Not Recovered/Not Resolved]
  - Rheumatoid arthritis [Recovered/Resolved]
  - Condition aggravated [Recovered/Resolved]
  - Joint swelling [Not Recovered/Not Resolved]
  - Bursitis [Recovered/Resolved]
  - Pharyngitis [Recovered/Resolved]
  - Oral fungal infection [Recovered/Resolved]
  - Psoriasis [Not Recovered/Not Resolved]
